FAERS Safety Report 6094384-9 (Version None)
Quarter: 2009Q1

REPORT INFORMATION
  Report Type: 
  Country: None (occurrence: None)
  Receive Date: 20090226
  Receipt Date: 20090217
  Transmission Date: 20090719
  Serious: Yes (Other)
  Sender: FDA-Public Use
  Company Number: US-ELI_LILLY_AND_COMPANY-US200902004534

PATIENT
  Age: 41 Year
  Sex: Female

DRUGS (2)
  1. CYMBALTA [Suspect]
     Dosage: 120 MG, UNK
     Route: 048
     Dates: start: 20060501, end: 20090201
  2. TRAZODONE HCL [Concomitant]
     Dosage: 50 MG, UNK

REACTIONS (1)
  - ELECTROCARDIOGRAM QT PROLONGED [None]
